FAERS Safety Report 8554523-4 (Version None)
Quarter: 2012Q3

REPORT INFORMATION
  Report Type: 
  Country: None (occurrence: None)
  Receive Date: 20120731
  Receipt Date: 20120723
  Transmission Date: 20120928
  Serious: Yes (Other)
  Sender: FDA-Public Use
  Company Number: US-009507513-1207USA010225

PATIENT

DRUGS (6)
  1. ZOCOR [Suspect]
     Route: 048
  2. ASPIRIN [Suspect]
  3. LANSOPRAZOLE [Suspect]
  4. LOSARTAN POTASSIUM [Suspect]
  5. PLAVIX [Suspect]
  6. SIGMART [Suspect]

REACTIONS (1)
  - JAUNDICE CHOLESTATIC [None]
